FAERS Safety Report 5228318-3 (Version None)
Quarter: 2007Q1

REPORT INFORMATION
  Report Type: 
  Country: None (occurrence: None)
  Receive Date: 20070131
  Receipt Date: 20070117
  Transmission Date: 20070707
  Serious: Yes (Hospitalization)
  Sender: FDA-Public Use
  Company Number: 07JP000857

PATIENT
  Age: 60 Year
  Sex: Female

DRUGS (3)
  1. PAROXETINE [Suspect]
     Indication: MAJOR DEPRESSION
     Dosage: 40 MG, QD
  2. LITHIUM CARBONATE [Suspect]
     Indication: MAJOR DEPRESSION
     Dosage: 400 MG, QD,
  3. RISPERIDONE [Concomitant]

REACTIONS (4)
  - DRUG INEFFECTIVE [None]
  - NO THERAPEUTIC RESPONSE [None]
  - OBSESSIVE-COMPULSIVE DISORDER [None]
  - PARKINSONISM [None]
